FAERS Safety Report 8862952 (Version 3)
Quarter: 2013Q1

REPORT INFORMATION
  Report Type: Spontaneous
  Country: JP (occurrence: JP)
  Receive Date: 20121026
  Receipt Date: 20130122
  Transmission Date: 20140127
  Serious: No
  Sender: FDA-Public Use
  Company Number: JP-UCBSA-069472

PATIENT
  Age: 38 Year
  Sex: Male

DRUGS (4)
  1. E KEPPRA [Suspect]
     Route: 048
     Dates: start: 20120620
  2. BAKTAR [Suspect]
     Dosage: UNKNOWN DOSE
     Route: 048
  3. TEGRETOL [Suspect]
     Dosage: DAILY DOSE: 200 MG
     Route: 048
  4. DEPAKENE [Suspect]
     Dosage: DAILY DOSE:800 MG
     Route: 048

REACTIONS (1)
  - Platelet count decreased [Recovered/Resolved]
